FAERS Safety Report 5912344-2 (Version None)
Quarter: 2008Q4

REPORT INFORMATION
  Report Type: 
  Country: None (occurrence: None)
  Receive Date: 20081007
  Receipt Date: 20081007
  Transmission Date: 20090506
  Serious: Yes (Life-Threatening)
  Sender: FDA-Public Use
  Company Number: None

PATIENT
  Age: 27 Year
  Sex: Female
  Weight: 54.4316 kg

DRUGS (1)
  1. CYMBALTA [Suspect]
     Indication: NEUROPATHY PERIPHERAL
     Dosage: 60MG TWICE A DAY PO
     Route: 048
     Dates: start: 20080715, end: 20081001

REACTIONS (5)
  - ANGER [None]
  - CRYING [None]
  - DEPRESSION [None]
  - NAUSEA [None]
  - TREMOR [None]
